FAERS Safety Report 4976626-3 (Version None)
Quarter: 2006Q2

REPORT INFORMATION
  Report Type: 
  Country: None (occurrence: None)
  Receive Date: 20060419
  Receipt Date: 20051003
  Transmission Date: 20061013
  Serious: Yes (Hospitalization, Disabling, Other)
  Sender: FDA-Public Use
  Company Number: US-MERCK-0510USA02838

PATIENT
  Age: 70 Year
  Sex: Female
  Weight: 64 kg

DRUGS (1)
  1. VIOXX [Suspect]
     Indication: ARTHRITIS
     Route: 048
     Dates: start: 20020128, end: 20020101

REACTIONS (10)
  - ARTERIAL INJURY [None]
  - BACK INJURY [None]
  - CEREBRAL DISORDER [None]
  - CEREBROVASCULAR ACCIDENT [None]
  - CORONARY ARTERY DISEASE [None]
  - GASTROINTESTINAL INJURY [None]
  - HOSPITALISATION [None]
  - LUNG INJURY [None]
  - RENAL INJURY [None]
  - VASCULAR INJURY [None]
